FAERS Safety Report 14549320 (Version 1)
Quarter: 2018Q1

REPORT INFORMATION
  Report Type: Spontaneous
  Country: GB (occurrence: GB)
  Receive Date: 20180219
  Receipt Date: 20180219
  Transmission Date: 20180509
  Serious: Yes (Other)
  Sender: FDA-Public Use
  Company Number: GB-TEVA-2018-GB-858172

PATIENT
  Age: 5 Decade
  Sex: Male

DRUGS (11)
  1. RIVASTIGMINE. [Suspect]
     Active Substance: RIVASTIGMINE
     Indication: MAJOR DEPRESSION
     Dosage: 4.2 MILLIGRAM DAILY;
     Route: 062
     Dates: start: 201301
  2. LAMOTRIGINE. [Concomitant]
     Active Substance: LAMOTRIGINE
     Indication: PETIT MAL EPILEPSY
     Dosage: 100 MILLIGRAM DAILY;
     Route: 065
  3. AMISULPRIDE [Concomitant]
     Active Substance: AMISULPRIDE
     Indication: MAJOR DEPRESSION
     Dosage: 300 MILLIGRAM DAILY;
     Route: 065
  4. DONEPEZIL. [Concomitant]
     Active Substance: DONEPEZIL
     Dosage: 100 MILLIGRAM DAILY;
     Dates: start: 201305
  5. IPRATROPIUM BROMIDE. [Concomitant]
     Active Substance: IPRATROPIUM BROMIDE
     Indication: SALIVARY HYPERSECRETION
     Route: 065
  6. HYOSCINE [Concomitant]
     Active Substance: SCOPOLAMINE
     Indication: SALIVARY HYPERSECRETION
     Route: 065
  7. LAMOTRIGINE. [Concomitant]
     Active Substance: LAMOTRIGINE
     Indication: MAJOR DEPRESSION
     Route: 065
  8. IPRATROPIUM BROMIDE. [Concomitant]
     Active Substance: IPRATROPIUM BROMIDE
     Route: 048
  9. CHLORPROMAZINE. [Concomitant]
     Active Substance: CHLORPROMAZINE
     Dosage: 300 MILLIGRAM DAILY;
     Route: 065
  10. CHLORPROMAZINE. [Concomitant]
     Active Substance: CHLORPROMAZINE
     Indication: MAJOR DEPRESSION
     Route: 065
  11. NORTRIPTYLINE [Concomitant]
     Active Substance: NORTRIPTYLINE
     Indication: MAJOR DEPRESSION
     Dosage: 300 MILLIGRAM DAILY;
     Route: 065

REACTIONS (6)
  - Nausea [Unknown]
  - Salivary hypersecretion [Unknown]
  - Pneumonia aspiration [Unknown]
  - Headache [Unknown]
  - Oral pain [Unknown]
  - Off label use [Unknown]
